FAERS Safety Report 8018513-2 (Version None)
Quarter: 2012Q1

REPORT INFORMATION
  Report Type: 
  Country: None (occurrence: None)
  Receive Date: 20120103
  Receipt Date: 20111228
  Transmission Date: 20120608
  Serious: Yes (Other)
  Sender: FDA-Public Use
  Company Number: US-PFIZER INC-2011286479

PATIENT
  Sex: Female
  Weight: 113 kg

DRUGS (1)
  1. PREMARIN [Suspect]
     Indication: OESTROGEN THERAPY
     Dosage: UNK, TWO TIMES A WEEK
     Route: 067
     Dates: start: 20111101, end: 20111117

REACTIONS (4)
  - PAIN [None]
  - OVARIAN DISORDER [None]
  - ADNEXA UTERI PAIN [None]
  - BACTERIAL TEST POSITIVE [None]
